FAERS Safety Report 7037733-7 (Version None)
Quarter: 2010Q4

REPORT INFORMATION
  Report Type: 
  Country: None (occurrence: None)
  Receive Date: 20101011
  Receipt Date: 20101001
  Transmission Date: 20110411
  Serious: Yes (Other)
  Sender: FDA-Public Use
  Company Number: US-WYE-H17881910

PATIENT

DRUGS (1)
  1. TEMSIROLIMUS [Suspect]
     Dosage: UNKNOWN
     Route: 065

REACTIONS (7)
  - BACK PAIN [None]
  - DYSPNOEA [None]
  - FLUSHING [None]
  - HYPERHIDROSIS [None]
  - HYPERSENSITIVITY [None]
  - HYPOXIA [None]
  - THROAT TIGHTNESS [None]
